FAERS Safety Report 14741936 (Version 14)
Quarter: 2022Q3

REPORT INFORMATION
  Report Type: Report from Study
  Country: CA (occurrence: CA)
  Receive Date: 20180410
  Receipt Date: 20220926
  Transmission Date: 20221026
  Serious: Yes (Other)
  Sender: FDA-Public Use
  Company Number: PHHY2018CA058187

PATIENT
  Age: 50 Year
  Sex: Female

DRUGS (13)
  1. COSENTYX [Suspect]
     Active Substance: SECUKINUMAB
     Indication: Psoriasis
     Dosage: 300 MG, QMO
     Route: 058
     Dates: start: 20180306
  2. COSENTYX [Suspect]
     Active Substance: SECUKINUMAB
     Dosage: UNK UNK, QW
     Route: 058
     Dates: start: 20180327
  3. COSENTYX [Suspect]
     Active Substance: SECUKINUMAB
     Dosage: 300 MG, QMO
     Route: 058
     Dates: start: 20180503
  4. COSENTYX [Suspect]
     Active Substance: SECUKINUMAB
     Dosage: 300 MG, QMO
     Route: 058
     Dates: start: 20180603
  5. COSENTYX [Suspect]
     Active Substance: SECUKINUMAB
     Dosage: UNK
     Route: 065
     Dates: start: 201810
  6. COSENTYX [Suspect]
     Active Substance: SECUKINUMAB
     Dosage: 150 MG, Q2W
     Route: 058
  7. COSENTYX [Suspect]
     Active Substance: SECUKINUMAB
     Dosage: 300 MG, Q3W
     Route: 058
  8. COSENTYX [Suspect]
     Active Substance: SECUKINUMAB
     Dosage: UNK, Q2W
     Route: 058
  9. METHOTREXATE [Concomitant]
     Active Substance: METHOTREXATE
     Indication: Product used for unknown indication
     Dosage: UNK
     Route: 065
  10. DICLOFENAC [Concomitant]
     Active Substance: DICLOFENAC
     Indication: Product used for unknown indication
     Dosage: UNK
     Route: 065
  11. OTEZLA [Concomitant]
     Active Substance: APREMILAST
     Indication: Product used for unknown indication
     Dosage: UNK
     Route: 065
     Dates: start: 201708, end: 201803
  12. SULFASALAZINE [Concomitant]
     Active Substance: SULFASALAZINE
     Indication: Product used for unknown indication
     Dosage: UNK
     Route: 065
  13. PREDNISONE [Concomitant]
     Active Substance: PREDNISONE
     Indication: Product used for unknown indication
     Dosage: UNK
     Route: 065

REACTIONS (23)
  - Pharyngitis streptococcal [Unknown]
  - Malaise [Unknown]
  - Chills [Unknown]
  - Feeling cold [Unknown]
  - Oropharyngeal pain [Not Recovered/Not Resolved]
  - Odynophagia [Unknown]
  - Sleep disorder [Unknown]
  - Respiratory tract congestion [Unknown]
  - Productive cough [Not Recovered/Not Resolved]
  - Feeling abnormal [Unknown]
  - Dyspnoea exertional [Not Recovered/Not Resolved]
  - Migraine [Unknown]
  - Fatigue [Unknown]
  - Hypersomnia [Unknown]
  - Gastrooesophageal reflux disease [Unknown]
  - Throat irritation [Recovering/Resolving]
  - Dizziness [Unknown]
  - Bone pain [Recovering/Resolving]
  - Rash [Unknown]
  - Inflammation [Not Recovered/Not Resolved]
  - Oral discomfort [Unknown]
  - Stress [Unknown]
  - Off label use [Unknown]

NARRATIVE: CASE EVENT DATE: 20180301
